FAERS Safety Report 15812206 (Version 1)
Quarter: 2019Q1

REPORT INFORMATION
  Report Type: Spontaneous
  Country: US (occurrence: US)
  Receive Date: 20190111
  Receipt Date: 20190111
  Transmission Date: 20190417
  Serious: Yes (Other)
  Sender: FDA-Public Use
  Company Number: US-PFIZER INC-2018523168

PATIENT
  Age: 16 Month
  Sex: Female

DRUGS (2)
  1. THROMBIN [Suspect]
     Active Substance: THROMBIN
     Dosage: UNK
  2. THROMBIN [Suspect]
     Active Substance: THROMBIN
     Indication: HAEMOSTASIS
     Dosage: UNK
     Route: 061

REACTIONS (3)
  - Drug effect incomplete [Unknown]
  - Product use issue [Unknown]
  - Coagulopathy [Recovered/Resolved]
